FAERS Safety Report 25172141 (Version 1)
Quarter: 2025Q2

REPORT INFORMATION
  Report Type: Spontaneous
  Country: FR (occurrence: FR)
  Receive Date: 20250408
  Receipt Date: 20250408
  Transmission Date: 20250717
  Serious: Yes (Other)
  Sender: REGENERON
  Company Number: FR-BAYER-2025A029705

PATIENT
  Age: 82 Year
  Sex: Female

DRUGS (2)
  1. EYLEA HD [Suspect]
     Active Substance: AFLIBERCEPT
     Indication: Age-related macular degeneration
     Route: 031
     Dates: start: 202501, end: 202501
  2. EYLEA HD [Suspect]
     Active Substance: AFLIBERCEPT
     Route: 031
     Dates: start: 20250221, end: 20250221

REACTIONS (5)
  - Keratic precipitates [Unknown]
  - Iridocyclitis [Recovered/Resolved]
  - Hyperaemia [Unknown]
  - Eye pain [Recovered/Resolved]
  - Anterior chamber flare [Unknown]

NARRATIVE: CASE EVENT DATE: 20250222
